FAERS Safety Report 7594337-5 (Version None)
Quarter: 2011Q3

REPORT INFORMATION
  Report Type: 
  Country: None (occurrence: None)
  Receive Date: 20110706
  Receipt Date: 20110630
  Transmission Date: 20111222
  Serious: Yes (Hospitalization)
  Sender: FDA-Public Use
  Company Number: US-BRISTOL-MYERS SQUIBB COMPANY-15868284

PATIENT
  Age: 53 Year
  Sex: Male
  Weight: 82 kg

DRUGS (1)
  1. COUMADIN [Suspect]
     Indication: ATRIAL FIBRILLATION
     Dosage: ONCE A DAY IN CYCLES,PRESCRIPTION:854962 SOME YRS STOPPED,RESTD + AGAIN INTRED RETARD:1APR11
     Dates: start: 19950501

REACTIONS (7)
  - GALLBLADDER DISORDER [None]
  - SINUSITIS [None]
  - PULMONARY HAEMORRHAGE [None]
  - CEREBROVASCULAR ACCIDENT [None]
  - NEPHROLITHIASIS [None]
  - LIVER ABSCESS [None]
  - TRANSIENT ISCHAEMIC ATTACK [None]
